FAERS Safety Report 10688116 (Version 1)
Quarter: 2014Q4

REPORT INFORMATION
  Report Type: Spontaneous
  Country: FR (occurrence: None)
  Receive Date: 20141231
  Receipt Date: 20141231
  Transmission Date: 20150529
  Serious: Yes (Other)
  Sender: FDA-Public Use
  Company Number: AXC-2014-000794

PATIENT
  Age: 60 Year
  Sex: Female
  Weight: 78 kg

DRUGS (1)
  1. PYLERA [Suspect]
     Active Substance: BISMUTH SUBCITRATE POTASSIUM\METRONIDAZOLE\TETRACYCLINE HYDROCHLORIDE
     Indication: HELICOBACTER INFECTION
     Route: 048
     Dates: start: 20141102, end: 20141107

REACTIONS (4)
  - Vomiting [None]
  - Abdominal pain [None]
  - Clostridium difficile infection [None]
  - Pain [None]

NARRATIVE: CASE EVENT DATE: 20141107
